FAERS Safety Report 24296167 (Version 1)
Quarter: 2024Q3

REPORT INFORMATION
  Report Type: Spontaneous
  Country: GB (occurrence: GB)
  Receive Date: 20240909
  Receipt Date: 20240909
  Transmission Date: 20241017
  Serious: Yes (Other)
  Sender: GLAXOSMITHKLINE
  Company Number: None

PATIENT

DRUGS (3)
  1. BENZOYL PEROXIDE\CLINDAMYCIN PHOSPHATE [Suspect]
     Active Substance: BENZOYL PEROXIDE\CLINDAMYCIN PHOSPHATE
     Indication: Ill-defined disorder
     Dosage: UNK (BENZOYL PEROXIDE 5% / CLINDAMYCIN 1% GEL)
     Route: 065
  2. AZELAIC ACID [Concomitant]
     Active Substance: AZELAIC ACID
     Indication: Ill-defined disorder
     Dosage: 1 DF, BID (1 AMPULE, BID)
     Route: 065
  3. BENZOYL PEROXIDE [Concomitant]
     Active Substance: BENZOYL PEROXIDE
     Indication: Ill-defined disorder
     Dosage: UNK UNK, QD (APPLY ONCE DAILY IN THE EVENING, DO NOT USE WIT...)
     Route: 065
     Dates: start: 20240208

REACTIONS (1)
  - Swelling face [Recovered/Resolved]
